FAERS Safety Report 24728592 (Version 1)
Quarter: 2024Q4

REPORT INFORMATION
  Report Type: Spontaneous
  Country: ES (occurrence: ES)
  Receive Date: 20241212
  Receipt Date: 20241212
  Transmission Date: 20250115
  Serious: Yes (Other)
  Sender: SAMSUNG BIOEPIS
  Company Number: None

PATIENT
  Age: 64 Year
  Sex: Female
  Weight: 48 kg

DRUGS (2)
  1. IMRALDI [Suspect]
     Active Substance: ADALIMUMAB
     Indication: Crohn^s disease
     Dosage: IMRALDI 40 MG SOLUTION FOR INJECTION IN PRE-FILLED SYRINGE, 2 SYRINGES OF 0.4ML;
     Dates: start: 20240702
  2. SULFASALAZINE [Suspect]
     Active Substance: SULFASALAZINE
     Indication: Crohn^s disease
     Dosage: SALAZOPYRINA 500 MG TABLETS, 50 TABLETS, 2 TABLETS EVERY 12 HOURS CHRONIC;
     Route: 002
     Dates: start: 20240613, end: 20240731

REACTIONS (1)
  - Toxic skin eruption [Recovered/Resolved]

NARRATIVE: CASE EVENT DATE: 20240715
